FAERS Safety Report 16113508 (Version 1)
Quarter: 2019Q1

REPORT INFORMATION
  Report Type: Spontaneous
  Country: US (occurrence: US)
  Receive Date: 20190325
  Receipt Date: 20190325
  Transmission Date: 20190418
  Serious: No
  Sender: FDA-Public Use
  Company Number: US-ALLERGAN-1838913US

PATIENT
  Age: 70 Year
  Sex: Female

DRUGS (1)
  1. LUMIGAN [Suspect]
     Active Substance: BIMATOPROST
     Indication: GLAUCOMA
     Dosage: 2 GTT, QHS, QD
     Route: 047
     Dates: end: 201712

REACTIONS (5)
  - Eye swelling [Not Recovered/Not Resolved]
  - Cataract operation [Unknown]
  - Eyelash changes [Recovered/Resolved]
  - Eye irritation [Recovered/Resolved]
  - Lipodystrophy acquired [Not Recovered/Not Resolved]

NARRATIVE: CASE EVENT DATE: 2017
